FAERS Safety Report 4332186-1 (Version None)
Quarter: 2004Q1

REPORT INFORMATION
  Report Type: 
  Country: None (occurrence: None)
  Receive Date: 20040329
  Receipt Date: 20040311
  Transmission Date: 20041129
  Serious: Yes (Hospitalization)
  Sender: FDA-Public Use
  Company Number: 192480

PATIENT
  Age: 41 Year
  Sex: Male
  Weight: 81.6475 kg

DRUGS (3)
  1. AVONEX [Suspect]
     Indication: MULTIPLE SCLEROSIS
     Dosage: 30 MCG QW IM
     Route: 030
     Dates: start: 20030401, end: 20030801
  2. AVONEX [Suspect]
     Indication: MULTIPLE SCLEROSIS
     Dosage: 30 MCG QW IM
     Route: 030
     Dates: start: 20030801
  3. TOPAMAX [Concomitant]

REACTIONS (16)
  - AGGRESSION [None]
  - ALCOHOLISM [None]
  - ANXIETY [None]
  - CEREBROSPINAL FLUID LEAKAGE [None]
  - COLD SWEAT [None]
  - CONDITION AGGRAVATED [None]
  - CRYING [None]
  - DEPRESSION [None]
  - DEVICE FAILURE [None]
  - DRUG DEPENDENCE [None]
  - HEADACHE [None]
  - HYPERHIDROSIS [None]
  - MULTIPLE SCLEROSIS [None]
  - POST PROCEDURAL COMPLICATION [None]
  - TREMOR [None]
  - VOMITING [None]
